FAERS Safety Report 19633673 (Version 32)
Quarter: 2024Q3

REPORT INFORMATION
  Report Type: Spontaneous
  Country: CA (occurrence: CA)
  Receive Date: 20210730
  Receipt Date: 20240705
  Transmission Date: 20241016
  Serious: Yes (Hospitalization, Other)
  Sender: CELLTRION
  Company Number: CA-CELLTRION INC.-2021CA008235

PATIENT

DRUGS (23)
  1. INFLECTRA [Suspect]
     Active Substance: INFLIXIMAB-DYYB
     Indication: Ankylosing spondylitis
     Dosage: 300 MG, 0, 2, 6, THEN EVERY 6 WEEKS
     Route: 042
     Dates: start: 20210531, end: 20210531
  2. INFLECTRA [Suspect]
     Active Substance: INFLIXIMAB-DYYB
     Dosage: 300 MG, 0, 2, 6, THEN EVERY 6 WEEKS
     Route: 042
     Dates: start: 20210616, end: 20210616
  3. INFLECTRA [Suspect]
     Active Substance: INFLIXIMAB-DYYB
     Dosage: 300 MG, 0, 2, 6, THEN EVERY 6 WEEKS
     Route: 042
     Dates: start: 20210719
  4. INFLECTRA [Suspect]
     Active Substance: INFLIXIMAB-DYYB
     Dosage: 300 MG EVERY 5 WEEKS
     Route: 042
  5. INFLECTRA [Suspect]
     Active Substance: INFLIXIMAB-DYYB
     Dosage: 300 MG, 0, 2, 6, THEN EVERY 6 WEEKS
     Route: 042
     Dates: start: 20211119
  6. INFLECTRA [Suspect]
     Active Substance: INFLIXIMAB-DYYB
     Dosage: 300 MG, EVERY 5 WEEKS
     Route: 042
     Dates: start: 20220201
  7. INFLECTRA [Suspect]
     Active Substance: INFLIXIMAB-DYYB
     Dosage: 300 MG, 0, 2, 6, THEN EVERY 6 WEEKS
     Route: 042
     Dates: start: 20220321
  8. INFLECTRA [Suspect]
     Active Substance: INFLIXIMAB-DYYB
     Dosage: 300 MG, 0, 2, 6, THEN EVERY 6 WEEKS
     Route: 042
     Dates: start: 20220426, end: 20220426
  9. INFLECTRA [Suspect]
     Active Substance: INFLIXIMAB-DYYB
     Dosage: 300 MG, EVERY 5 WEEKS
     Route: 042
     Dates: start: 20220602
  10. INFLECTRA [Suspect]
     Active Substance: INFLIXIMAB-DYYB
     Dosage: 300 MG, EVERY 5 WEEKS
     Route: 042
     Dates: start: 20220707
  11. INFLECTRA [Suspect]
     Active Substance: INFLIXIMAB-DYYB
     Dosage: 300 MG, EVERY 5 WEEKS
     Route: 042
     Dates: start: 20221020
  12. INFLECTRA [Suspect]
     Active Substance: INFLIXIMAB-DYYB
     Dosage: 300 MG, EVERY 5 WEEKS
     Route: 042
     Dates: start: 20230113
  13. INFLECTRA [Suspect]
     Active Substance: INFLIXIMAB-DYYB
     Dosage: 300 MG, EVERY 5 WEEKS
     Route: 042
     Dates: start: 20230224
  14. INFLECTRA [Suspect]
     Active Substance: INFLIXIMAB-DYYB
     Dosage: 300 MG, 16 WEEKS AND 6 DAYS AFTER LAST INFUSION (SUPPOSED TO BE EVERY 5 WEEKS)
     Route: 042
     Dates: start: 20230622
  15. INFLECTRA [Suspect]
     Active Substance: INFLIXIMAB-DYYB
     Dosage: 300 MG, 16 WEEKS AND 4 DAYS AFTER LAST INFUSION (SUPPOSED TO BE EVERY 5 WEEKS)
     Route: 042
     Dates: start: 20231016, end: 20231016
  16. ACETAMINOPHEN [Concomitant]
     Active Substance: ACETAMINOPHEN
     Indication: Premedication
     Dosage: 650 MG
     Route: 048
     Dates: start: 20210616, end: 20210616
  17. CYCLOBENZAPRINE [Concomitant]
     Active Substance: CYCLOBENZAPRINE
     Dosage: 10 MG
  18. DULOXETINE [Concomitant]
     Active Substance: DULOXETINE
     Dosage: 30 MG
  19. DULOXETINE [Concomitant]
     Active Substance: DULOXETINE
     Dosage: 60 MG DIE
  20. GABAPENTIN [Concomitant]
     Active Substance: GABAPENTIN
     Dosage: 400 MG (400 MG DIE + 200 MG BID 800 (MG))
  21. GABAPENTIN [Concomitant]
     Active Substance: GABAPENTIN
     Dosage: 200 MG, 2X/DAY (400 MG DIE + 200 MG BID 800 (MG))
  22. INDOMETHACIN [Concomitant]
     Active Substance: INDOMETHACIN
     Dosage: 100 MG, AS NEEDED
  23. NABILONE [Concomitant]
     Active Substance: NABILONE
     Dosage: 2 MG, 2X/DAY

REACTIONS (39)
  - Large intestine infection [Unknown]
  - Loss of consciousness [Unknown]
  - Ocular hypertension [Not Recovered/Not Resolved]
  - Colitis [Recovered/Resolved]
  - Tooth extraction [Unknown]
  - Eyelid disorder [Recovered/Resolved]
  - Urinary tract disorder [Unknown]
  - Bladder disorder [Unknown]
  - Fatigue [Not Recovered/Not Resolved]
  - Treatment failure [Unknown]
  - Nasal congestion [Unknown]
  - Eye swelling [Unknown]
  - Ocular hyperaemia [Unknown]
  - Musculoskeletal discomfort [Not Recovered/Not Resolved]
  - Oropharyngeal pain [Unknown]
  - Chest discomfort [Not Recovered/Not Resolved]
  - Vaginal haemorrhage [Not Recovered/Not Resolved]
  - Tachycardia [Unknown]
  - Cough [Unknown]
  - Heart rate irregular [Not Recovered/Not Resolved]
  - Palpitations [Unknown]
  - Nasopharyngitis [Not Recovered/Not Resolved]
  - COVID-19 [Unknown]
  - Headache [Not Recovered/Not Resolved]
  - Body temperature increased [Unknown]
  - Myalgia [Unknown]
  - Pruritus [Not Recovered/Not Resolved]
  - Blood pressure increased [Not Recovered/Not Resolved]
  - Condition aggravated [Not Recovered/Not Resolved]
  - Oral infection [Unknown]
  - Pain [Not Recovered/Not Resolved]
  - Vaginal infection [Unknown]
  - Large intestine infection [Recovered/Resolved]
  - Pyrexia [Not Recovered/Not Resolved]
  - Treatment noncompliance [Not Recovered/Not Resolved]
  - Off label use [Unknown]
  - Off label use [Unknown]
  - Intentional product use issue [Unknown]
  - Inappropriate schedule of product administration [Unknown]

NARRATIVE: CASE EVENT DATE: 20210531
